FAERS Safety Report 25823874 (Version 1)
Quarter: 2025Q3

REPORT INFORMATION
  Report Type: Spontaneous
  Country: US (occurrence: US)
  Receive Date: 20250919
  Receipt Date: 20250919
  Transmission Date: 20251021
  Serious: No
  Sender: ANI
  Company Number: US-ANIPHARMA-2025-US-026351

PATIENT
  Sex: Female

DRUGS (8)
  1. CORTICOTROPIN [Suspect]
     Active Substance: CORTICOTROPIN
     Indication: Rheumatoid arthritis
     Route: 058
     Dates: start: 202504
  2. HYALURONIC ACID HYDROLYZE [Concomitant]
  3. MAGNESIUM [Concomitant]
     Active Substance: MAGNESIUM
  4. ACIDOPHILUS PROBIOTIC FOR [Concomitant]
  5. FOLIC ACID [Concomitant]
     Active Substance: FOLIC ACID
  6. COLLAGEN ULTRA [Concomitant]
  7. QC WOMENS DAILY MULTIVITA [Concomitant]
  8. HOMEOPATHICS [Concomitant]
     Active Substance: HOMEOPATHICS

REACTIONS (8)
  - Injection site pruritus [Unknown]
  - Product dose omission issue [Unknown]
  - Abnormal weight gain [Unknown]
  - Cushingoid [Unknown]
  - Arthralgia [Unknown]
  - Drug ineffective [Unknown]
  - Product administration interrupted [Unknown]
  - Therapeutic response unexpected [Unknown]
